FAERS Safety Report 4622240-9 (Version None)
Quarter: 2005Q1

REPORT INFORMATION
  Report Type: 
  Country: None (occurrence: None)
  Receive Date: 20050323
  Receipt Date: 20050323
  Transmission Date: 20050727
  Serious: Yes (Death)
  Sender: FDA-Public Use
  Company Number: None

PATIENT
  Sex: Male
  Weight: 81 kg

DRUGS (2)
  1. MITOXANTRONE [Suspect]
     Dosage: 14 MG/M2 IV OVER 30 MIN ON DAY 1, EVERY 21 DAYS
     Route: 042
     Dates: start: 20050110
  2. PREDNISONE [Suspect]
     Dosage: 5 MG PO BID . CYCLE = 21 DAYS
     Route: 048

REACTIONS (9)
  - BLOOD CREATININE INCREASED [None]
  - BONE PAIN [None]
  - DEHYDRATION [None]
  - JAUNDICE [None]
  - MALIGNANT NEOPLASM PROGRESSION [None]
  - OBSTRUCTION [None]
  - PAIN [None]
  - RENAL DISORDER [None]
  - RENAL FAILURE [None]
